FAERS Safety Report 8462071-5 (Version None)
Quarter: 2012Q2

REPORT INFORMATION
  Report Type: 
  Country: None (occurrence: None)
  Receive Date: 20120618
  Receipt Date: 20120612
  Transmission Date: 20120825
  Serious: Yes (Disabling)
  Sender: FDA-Public Use
  Company Number: AUR-APL-2012-02265

PATIENT
  Age: 47 Year
  Sex: Female
  Weight: 78 kg

DRUGS (3)
  1. AMOXICILLIN [Suspect]
     Indication: SKIN INFECTION
     Dates: start: 20120429
  2. FLOXACILLIN SODIUM [Suspect]
     Indication: SKIN INFECTION
     Dates: start: 20120429
  3. MICRONOR [Concomitant]

REACTIONS (3)
  - MELAENA [None]
  - ABDOMINAL PAIN [None]
  - GASTROINTESTINAL HAEMORRHAGE [None]
